FAERS Safety Report 10899486 (Version 4)
Quarter: 2015Q2

REPORT INFORMATION
  Report Type: Spontaneous
  Country: US (occurrence: US)
  Receive Date: 20150309
  Receipt Date: 20150522
  Transmission Date: 20150821
  Serious: Yes (Other)
  Sender: FDA-Public Use
  Company Number: US-PFIZER INC-2015078993

PATIENT
  Age: 61 Year
  Sex: Male
  Weight: 100 kg

DRUGS (15)
  1. CELEBREX [Interacting]
     Active Substance: CELECOXIB
     Indication: ULCER
  2. DUEXIS [Interacting]
     Active Substance: FAMOTIDINE\IBUPROFEN
     Indication: PAIN
  3. MODAFINIL. [Interacting]
     Active Substance: MODAFINIL
     Indication: POOR QUALITY SLEEP
     Dosage: 200 MG, 1X/DAY
     Route: 048
     Dates: start: 201502
  4. LYRICA [Interacting]
     Active Substance: PREGABALIN
     Indication: BACK INJURY
     Dosage: UNK
  5. CELEBREX [Interacting]
     Active Substance: CELECOXIB
     Dosage: UNK
  6. ETODOLAC. [Interacting]
     Active Substance: ETODOLAC
     Dosage: 300 MG, 2X/DAY
     Route: 048
     Dates: start: 201409
  7. DUEXIS [Interacting]
     Active Substance: FAMOTIDINE\IBUPROFEN
     Indication: PERIPHERAL SWELLING
     Dosage: 800 MG/26.6 MG, 1 DF 3X/DAY
     Route: 048
     Dates: start: 2014, end: 201502
  8. LYRICA [Suspect]
     Active Substance: PREGABALIN
     Indication: FIBROMYALGIA
     Dosage: 150 MG, 4X/DAY
     Dates: start: 201207
  9. LYRICA [Interacting]
     Active Substance: PREGABALIN
     Indication: ARTHRITIS
     Dosage: 200 MG, UNK
     Dates: start: 2013
  10. CELEBREX [Interacting]
     Active Substance: CELECOXIB
     Indication: ABDOMINAL PAIN UPPER
     Dosage: 200 MG, 1X/DAY
     Route: 048
     Dates: start: 2014, end: 2014
  11. GABAPENTIN. [Concomitant]
     Active Substance: GABAPENTIN
     Indication: PAIN
     Dosage: 300 MG, 4X/DAY
     Dates: start: 2013
  12. LYRICA [Interacting]
     Active Substance: PREGABALIN
     Indication: PAIN
     Dosage: 100 MG, UNK
  13. VENLAFAXINE HCL [Interacting]
     Active Substance: VENLAFAXINE HYDROCHLORIDE
     Indication: DEPRESSION
     Dosage: 37.5 MG, 1X/DAY
     Route: 048
  14. ETODOLAC. [Interacting]
     Active Substance: ETODOLAC
     Dosage: UNK
  15. DUEXIS [Interacting]
     Active Substance: FAMOTIDINE\IBUPROFEN
     Indication: SWELLING

REACTIONS (7)
  - Tremor [Not Recovered/Not Resolved]
  - Weight increased [Unknown]
  - Joint swelling [Unknown]
  - Peripheral swelling [Unknown]
  - Drug interaction [Unknown]
  - Product use issue [Unknown]
  - Foot deformity [Unknown]

NARRATIVE: CASE EVENT DATE: 201207
